FAERS Safety Report 15941338 (Version 1)
Quarter: 2019Q1

REPORT INFORMATION
  Report Type: Spontaneous
  Country: US (occurrence: US)
  Receive Date: 20190208
  Receipt Date: 20190208
  Transmission Date: 20190417
  Serious: Yes (Hospitalization, Other)
  Sender: FDA-Public Use
  Company Number: US-009507513-1901USA012353

PATIENT
  Sex: Female
  Weight: 40.82 kg

DRUGS (15)
  1. POTASSIUM (UNSPECIFIED) [Concomitant]
     Active Substance: POTASSIUM
  2. METOPROLOL. [Concomitant]
     Active Substance: METOPROLOL
  3. OMEPRAZOLE. [Concomitant]
     Active Substance: OMEPRAZOLE
  4. ESTROGENS, CONJUGATED [Concomitant]
     Active Substance: ESTROGENS, CONJUGATED
  5. FLUTICASONE. [Concomitant]
     Active Substance: FLUTICASONE
  6. ZOCOR [Suspect]
     Active Substance: SIMVASTATIN
     Dosage: 10 MILLIGRAM, DAILY
     Route: 048
     Dates: start: 201901
  7. VERAPAMIL [Concomitant]
     Active Substance: VERAPAMIL HYDROCHLORIDE
  8. ASPIRIN. [Concomitant]
     Active Substance: ASPIRIN
  9. ZOCOR [Suspect]
     Active Substance: SIMVASTATIN
     Indication: BLOOD CHOLESTEROL INCREASED
     Dosage: 40 MILLIGRAM, DAILY
     Route: 048
     Dates: start: 1998
  10. ESTRADIOL. [Concomitant]
     Active Substance: ESTRADIOL
  11. HYDROCHLOROTHIAZIDE. [Concomitant]
     Active Substance: HYDROCHLOROTHIAZIDE
  12. GABAPENTIN. [Concomitant]
     Active Substance: GABAPENTIN
  13. TIOTROPIUM BROMIDE [Concomitant]
     Active Substance: TIOTROPIUM BROMIDE
  14. ALBUTEROL. [Concomitant]
     Active Substance: ALBUTEROL
  15. ZONISAMIDE. [Concomitant]
     Active Substance: ZONISAMIDE

REACTIONS (19)
  - Adverse event [Unknown]
  - Gastrointestinal disorder [Unknown]
  - Overdose [Unknown]
  - Diplopia [Recovered/Resolved]
  - Dyspnoea [Unknown]
  - Drug interaction [Not Recovered/Not Resolved]
  - Sinus operation [Unknown]
  - Weight decreased [Unknown]
  - Hypersensitivity [Not Recovered/Not Resolved]
  - Dyspepsia [Unknown]
  - Muscle atrophy [Not Recovered/Not Resolved]
  - Abdominal pain upper [Unknown]
  - Biliary dilatation [Not Recovered/Not Resolved]
  - Eye operation [Unknown]
  - Glaucoma [Not Recovered/Not Resolved]
  - Weight increased [Unknown]
  - Myopathy [Unknown]
  - Muscle disorder [Unknown]
  - Gastrooesophageal reflux disease [Unknown]

NARRATIVE: CASE EVENT DATE: 1998
